FAERS Safety Report 10189115 (Version 2)
Quarter: 2014Q3

REPORT INFORMATION
  Report Type: Spontaneous
  Country: AU (occurrence: None)
  Receive Date: 20140520
  Receipt Date: 20140722
  Transmission Date: 20150326
  Serious: Yes (Life-Threatening, Other)
  Sender: FDA-Public Use
  Company Number: AUR-APL-2014-05710

PATIENT
  Age: 29 Year
  Sex: Female

DRUGS (4)
  1. FLUOXETINE HYDROCHLORIDE (FLUOXETINE HYDROCHLORIDE) [Suspect]
     Active Substance: FLUOXETINE HYDROCHLORIDE
     Indication: PRODUCT USED FOR UNKNOWN INDICATION
  2. CELESTONE (BETAMETHASONE) [Concomitant]
  3. NIFEDIPINE (NIFEDIPINE) (NIFEDIPINE) [Concomitant]
     Active Substance: NIFEDIPINE
  4. QUETIAPINE 200MG (QUETIAPINE) UNKNOWN, 200MG [Suspect]
     Active Substance: QUETIAPINE
     Indication: PRODUCT USED FOR UNKNOWN INDICATION
     Dosage: 200 MG, ONCE A DAY,, UNKNOWN

REACTIONS (3)
  - Exposure during pregnancy [None]
  - Postpartum haemorrhage [None]
  - Caesarean section [None]

NARRATIVE: CASE EVENT DATE: 20120920
